FAERS Safety Report 15195921 (Version 2)
Quarter: 2018Q3

REPORT INFORMATION
  Report Type: Spontaneous
  Country: US (occurrence: US)
  Receive Date: 20180725
  Receipt Date: 20180730
  Transmission Date: 20181010
  Serious: No
  Sender: FDA-Public Use
  Company Number: US-PFIZER INC-2018297230

PATIENT
  Age: 79 Year
  Sex: Female
  Weight: 72.57 kg

DRUGS (2)
  1. NOVOCAINE [Suspect]
     Active Substance: PROCAINE
     Indication: HYPOAESTHESIA
     Dosage: UNK
  2. ZOLEDRONIC ACID [Suspect]
     Active Substance: ZOLEDRONIC ACID
     Indication: HYPERKALAEMIA
     Dosage: UNK
     Dates: start: 201802

REACTIONS (6)
  - Diarrhoea [Recovering/Resolving]
  - Pain [Not Recovered/Not Resolved]
  - Mouth swelling [Recovered/Resolved]
  - Lip swelling [Recovered/Resolved]
  - Faeces discoloured [Recovering/Resolving]
  - Product use in unapproved indication [Unknown]

NARRATIVE: CASE EVENT DATE: 20180609
